FAERS Safety Report 16717023 (Version 1)
Quarter: 2019Q3

REPORT INFORMATION
  Report Type: Spontaneous
  Country: DE (occurrence: DE)
  Receive Date: 20190819
  Receipt Date: 20190819
  Transmission Date: 20191005
  Serious: Yes (Life-Threatening, Other)
  Sender: FDA-Public Use
  Company Number: DE-TEVA-2019-DE-1092590

PATIENT
  Age: 65 Year
  Sex: Female
  Weight: 55 kg

DRUGS (1)
  1. METFORMIN [Suspect]
     Active Substance: METFORMIN HYDROCHLORIDE
     Indication: DIABETES MELLITUS
     Dosage: 1-0-1
     Route: 048
     Dates: start: 2007, end: 201907

REACTIONS (2)
  - Lactic acidosis [Not Recovered/Not Resolved]
  - Cardiac dysfunction [Unknown]

NARRATIVE: CASE EVENT DATE: 201907
